FAERS Safety Report 7940378-5 (Version None)
Quarter: 2011Q4

REPORT INFORMATION
  Report Type: 
  Country: None (occurrence: None)
  Receive Date: 20111127
  Receipt Date: 20111114
  Transmission Date: 20120403
  Serious: Yes (Hospitalization)
  Sender: FDA-Public Use
  Company Number: CA-ASTRAZENECA-2011SE68918

PATIENT
  Age: 64 Year
  Sex: Female

DRUGS (2)
  1. SPIRONOLACTONE [Suspect]
     Route: 065
  2. ATACAND [Suspect]
     Route: 048

REACTIONS (3)
  - ASTHENIA [None]
  - DYSSTASIA [None]
  - HYPERKALAEMIA [None]
